FAERS Safety Report 8160594-X (Version None)
Quarter: 2012Q1

REPORT INFORMATION
  Report Type: 
  Country: None (occurrence: None)
  Receive Date: 20120223
  Receipt Date: 20120222
  Transmission Date: 20120608
  Serious: Yes (Hospitalization)
  Sender: FDA-Public Use
  Company Number: FR-AMGEN-FRANI2012007235

PATIENT
  Age: 46 Year
  Sex: Female

DRUGS (2)
  1. PREDNISONE [Concomitant]
     Dosage: 60 MG, UNK
     Route: 048
     Dates: start: 20110823
  2. NPLATE [Suspect]
     Indication: THROMBOCYTOPENIA
     Dosage: 3 MG/KG, QWK
     Route: 058
     Dates: start: 20110824

REACTIONS (1)
  - HAEMORRHAGE [None]
